FAERS Safety Report 10169708 (Version 1)
Quarter: 2014Q2

REPORT INFORMATION
  Report Type: Spontaneous
  Country: US (occurrence: US)
  Receive Date: 20140513
  Receipt Date: 20140513
  Transmission Date: 20141212
  Serious: No
  Sender: FDA-Public Use
  Company Number: US-009507513-1405USA003628

PATIENT
  Age: 61 Year
  Sex: Female

DRUGS (1)
  1. NEXPLANON [Suspect]
     Dosage: UNK
     Dates: start: 20130208

REACTIONS (3)
  - Road traffic accident [Unknown]
  - Musculoskeletal pain [Unknown]
  - Neck pain [Unknown]
